FAERS Safety Report 5224948-3 (Version None)
Quarter: 2007Q1

REPORT INFORMATION
  Report Type: 
  Country: None (occurrence: None)
  Receive Date: 20070126
  Receipt Date: 20070116
  Transmission Date: 20070707
  Serious: Yes (Congenital Anomaly)
  Sender: FDA-Public Use
  Company Number: B0454623A

PATIENT
  Sex: 0

DRUGS (6)
  1. AZATHIOPRINE [Suspect]
     Dosage: TRANSPLACENTARY
  2. TAGAMET [Suspect]
     Dosage: TRANSPLACENTARY
     Route: 064
  3. METOCLOPRAMIDE HCL [Suspect]
     Dosage: TRANSPLACENTARY
     Route: 064
  4. PHENOXYMETHYLPENICILLIN [Suspect]
     Dosage: TRANSPLACENTARY
     Route: 064
  5. PREDNISONE TAB [Suspect]
     Dosage: TRANSPLACENTARY
     Route: 064
  6. ACETAMINOPHEN AND CODEINE PHOSPAHTE [Suspect]
     Dosage: TRANSPLACENTARY
     Route: 064

REACTIONS (2)
  - CONGENITAL MUSCULOSKELETAL ANOMALY [None]
  - DRUG EXPOSURE DURING PREGNANCY [None]
